FAERS Safety Report 8005725-7 (Version None)
Quarter: 2011Q4

REPORT INFORMATION
  Report Type: 
  Country: None (occurrence: None)
  Receive Date: 20111223
  Receipt Date: 20111220
  Transmission Date: 20120403
  Serious: Yes (Other)
  Sender: FDA-Public Use
  Company Number: GXKR2011DE003643

PATIENT

DRUGS (5)
  1. RAMIPRIL [Concomitant]
     Indication: HYPERTENSION
     Route: 048
  2. AMLODIPINE [Concomitant]
     Indication: HYPERTENSION
     Route: 048
  3. PROTELOS (STRONTIUM RANELATE) [Concomitant]
     Indication: OSTEOPOROSIS
     Route: 048
     Dates: start: 20101201
  4. LEFLUNOMIDE [Suspect]
     Dosage: DAILY DOSE: 20 MG MILLGRAM(S) EVERY DAYS
     Route: 048
     Dates: start: 20091201, end: 20110801
  5. METHYLPREDNISOLONE [Concomitant]
     Route: 048

REACTIONS (4)
  - MUSCULAR WEAKNESS [None]
  - PERONEAL NERVE PALSY [None]
  - GAIT DISTURBANCE [None]
  - POLYNEUROPATHY [None]
